FAERS Safety Report 23296601 (Version 1)
Quarter: 2023Q4

REPORT INFORMATION
  Report Type: Spontaneous
  Country: NZ (occurrence: NZ)
  Receive Date: 20231214
  Receipt Date: 20231214
  Transmission Date: 20240110
  Serious: Yes (Hospitalization)
  Sender: FDA-Public Use
  Company Number: NZ-ELI_LILLY_AND_COMPANY-NZ202312000636

PATIENT
  Age: 65 Year
  Sex: Male

DRUGS (1)
  1. TRULICITY [Suspect]
     Active Substance: DULAGLUTIDE
     Indication: Type 2 diabetes mellitus
     Dosage: UNK UNK, UNKNOWN
     Route: 065

REACTIONS (9)
  - Myocardial infarction [Unknown]
  - Infection [Unknown]
  - Pollakiuria [Unknown]
  - Testicular swelling [Unknown]
  - Testicular pain [Unknown]
  - Sleep deficit [Unknown]
  - Dizziness [Unknown]
  - Dyspnoea [Unknown]
  - Vomiting [Unknown]
